FAERS Safety Report 7521684-5 (Version None)
Quarter: 2011Q2

REPORT INFORMATION
  Report Type: 
  Country: None (occurrence: None)
  Receive Date: 20110524
  Receipt Date: 20110426
  Transmission Date: 20111010
  Serious: Yes (Hospitalization)
  Sender: FDA-Public Use
  Company Number: COMPLAINT#03011

PATIENT
  Age: 46 Year
  Sex: Male
  Weight: 92.9874 kg

DRUGS (1)
  1. PHENYLEPHRINE HCL [Suspect]
     Dosage: 2 TABS, 4 HOURLY, ORAL
     Route: 048
     Dates: start: 20110422

REACTIONS (3)
  - GENERALISED OEDEMA [None]
  - DYSPNOEA [None]
  - URTICARIA [None]
